FAERS Safety Report 7121415-7 (Version None)
Quarter: 2010Q4

REPORT INFORMATION
  Report Type: 
  Country: None (occurrence: None)
  Receive Date: 20101124
  Receipt Date: 20101112
  Transmission Date: 20110411
  Serious: Yes (Hospitalization, Other)
  Sender: FDA-Public Use
  Company Number: PHHY2010AR77188

PATIENT
  Sex: Male

DRUGS (1)
  1. RASILEZ [Suspect]
     Indication: HYPERTENSION
     Dosage: 300 MG, ONE TABLET, DAILY
     Dates: start: 20100901, end: 20101108

REACTIONS (3)
  - DRUG INEFFECTIVE [None]
  - ERYSIPELAS [None]
  - RENAL DISORDER [None]
